FAERS Safety Report 5952053-7 (Version None)
Quarter: 2008Q4

REPORT INFORMATION
  Report Type: 
  Country: None (occurrence: None)
  Receive Date: 20081113
  Receipt Date: 20080221
  Transmission Date: 20090506
  Serious: No
  Sender: FDA-Public Use
  Company Number: A0707478A

PATIENT
  Age: 83 Year
  Sex: Female

DRUGS (3)
  1. COREG [Suspect]
     Indication: DRUG USE FOR UNKNOWN INDICATION
     Route: 048
  2. FUROSEMIDE [Concomitant]
  3. COUMADIN [Concomitant]

REACTIONS (1)
  - HYPOTENSION [None]
